FAERS Safety Report 7349256-6 (Version None)
Quarter: 2011Q1

REPORT INFORMATION
  Report Type: 
  Country: None (occurrence: None)
  Receive Date: 20110303
  Receipt Date: 20110225
  Transmission Date: 20110831
  Serious: Yes (Other)
  Sender: FDA-Public Use
  Company Number: 2011SP009076

PATIENT
  Age: 42 Year
  Sex: Female
  Weight: 66.2252 kg

DRUGS (2)
  1. IMPLANON [Suspect]
     Indication: CONTRACEPTION
  2. EFFEXOR [Concomitant]

REACTIONS (2)
  - CONVULSION [None]
  - AMENORRHOEA [None]
